FAERS Safety Report 7820485-8 (Version None)
Quarter: 2011Q4

REPORT INFORMATION
  Report Type: 
  Country: None (occurrence: None)
  Receive Date: 20111018
  Receipt Date: 20111011
  Transmission Date: 20120403
  Serious: Yes (Other)
  Sender: FDA-Public Use
  Company Number: US-BAYER-2011-098491

PATIENT
  Sex: Female

DRUGS (2)
  1. YAZ [Suspect]
     Dosage: UNK
     Dates: start: 20040213
  2. YASMIN [Suspect]
     Dosage: UNK
     Dates: start: 20040213

REACTIONS (3)
  - PAIN [None]
  - CHOLECYSTITIS [None]
  - INJURY [None]
